FAERS Safety Report 26160133 (Version 1)
Quarter: 2025Q4

REPORT INFORMATION
  Report Type: Spontaneous
  Country: US (occurrence: US)
  Receive Date: 20251216
  Receipt Date: 20251216
  Transmission Date: 20260118
  Serious: No
  Sender: ABBVIE
  Company Number: US-ABBVIE-6589691

PATIENT
  Age: 71 Year
  Sex: Male
  Weight: 99.28 kg

DRUGS (8)
  1. VENCLEXTA [Suspect]
     Active Substance: VENETOCLAX
     Indication: Product used for unknown indication
     Route: 048
  2. BRUKINSA [Suspect]
     Active Substance: ZANUBRUTINIB
     Indication: Chronic lymphocytic leukaemia
     Dosage: 320 MILLIGRAM DAILY
     Route: 048
     Dates: start: 20240925
  3. BRUKINSA [Suspect]
     Active Substance: ZANUBRUTINIB
     Indication: Chronic lymphocytic leukaemia
     Dosage: 320 MILLIGRAM DAILY
     Route: 048
     Dates: start: 20240925
  4. BRUKINSA [Suspect]
     Active Substance: ZANUBRUTINIB
     Indication: Chronic lymphocytic leukaemia
     Dosage: 320 MILLIGRAM DAILY
     Route: 048
     Dates: start: 20240925
  5. BRUKINSA [Suspect]
     Active Substance: ZANUBRUTINIB
     Indication: Chronic lymphocytic leukaemia
     Dosage: 240 MILLIGRAM DAILY
     Route: 048
  6. BRUKINSA [Suspect]
     Active Substance: ZANUBRUTINIB
     Indication: Chronic lymphocytic leukaemia
     Dosage: 240 MILLIGRAM DAILY
     Route: 048
     Dates: start: 20240925
  7. BRUKINSA [Suspect]
     Active Substance: ZANUBRUTINIB
     Indication: Chronic lymphocytic leukaemia
     Dosage: 320 MILLIGRAM DAILY
     Route: 048
     Dates: start: 20240925
  8. BRUKINSA [Suspect]
     Active Substance: ZANUBRUTINIB
     Indication: Chronic lymphocytic leukaemia
     Dosage: 320 MILLIGRAM
     Route: 048
     Dates: start: 20240924

REACTIONS (11)
  - Pleural effusion [Unknown]
  - Infusion related reaction [Unknown]
  - Aspiration pleural cavity [Unknown]
  - Product dose omission issue [Unknown]
  - Nail disorder [Unknown]
  - Weight increased [Unknown]
  - Increased appetite [Unknown]
  - Back injury [Unknown]
  - Oropharyngeal pain [Unknown]
  - Diarrhoea [Unknown]
  - Flatulence [Unknown]
